FAERS Safety Report 6292383-5 (Version None)
Quarter: 2009Q3

REPORT INFORMATION
  Report Type: 
  Country: None (occurrence: None)
  Receive Date: 20090731
  Receipt Date: 20090723
  Transmission Date: 20100115
  Serious: Yes (Hospitalization)
  Sender: FDA-Public Use
  Company Number: DK-TEVA-203586ISR

PATIENT
  Sex: Female

DRUGS (1)
  1. CITALOPRAM HYDROBROMIDE [Suspect]
     Route: 064

REACTIONS (3)
  - HEART RATE DECREASED [None]
  - NEONATAL ASPHYXIA [None]
  - RESPIRATORY DISTRESS [None]
